FAERS Safety Report 4765962-1 (Version None)
Quarter: 2005Q3

REPORT INFORMATION
  Report Type: 
  Country: None (occurrence: None)
  Receive Date: 20050906
  Receipt Date: 20050824
  Transmission Date: 20060218
  Serious: Yes (Death)
  Sender: FDA-Public Use
  Company Number: JP_050807426

PATIENT
  Age: 69 Year
  Sex: Female

DRUGS (7)
  1. TOBRAMYCIN SULFATE [Suspect]
     Dates: start: 20041101, end: 20040101
  2. TIENAM [Concomitant]
  3. AREDIA [Concomitant]
  4. VOLTAREN [Concomitant]
  5. PIPERACILLIN SODIUM [Concomitant]
  6. GRAN (FILGRASTIM) [Concomitant]
  7. IMMUNE GLOBULIN INTRAVENOUS (HUMAN) [Concomitant]

REACTIONS (6)
  - COMPUTERISED TOMOGRAM ABNORMAL [None]
  - DISORIENTATION [None]
  - GAIT DISTURBANCE [None]
  - LEUKOENCEPHALOPATHY [None]
  - NUCLEAR MAGNETIC RESONANCE IMAGING BRAIN ABNORMAL [None]
  - TREMOR [None]
